FAERS Safety Report 10589654 (Version 1)
Quarter: 2014Q4

REPORT INFORMATION
  Report Type: Spontaneous
  Country: US (occurrence: None)
  Receive Date: 20141117
  Receipt Date: 20141117
  Transmission Date: 20150529
  Serious: Yes (Other)
  Sender: FDA-Public Use
  Company Number: None

PATIENT
  Age: 48 Year
  Sex: Female
  Weight: 69.85 kg

DRUGS (1)
  1. STIVARGA [Suspect]
     Active Substance: REGORAFENIB
     Indication: COLON CANCER STAGE IV
     Dosage: 4 PILLS
     Route: 048

REACTIONS (9)
  - Vomiting [None]
  - Palmar-plantar erythrodysaesthesia syndrome [None]
  - Condition aggravated [None]
  - Skin exfoliation [None]
  - Pain in extremity [None]
  - Rash pruritic [None]
  - Chills [None]
  - Hot flush [None]
  - Pain [None]

NARRATIVE: CASE EVENT DATE: 20140812
